FAERS Safety Report 12561884 (Version 1)
Quarter: 2016Q3

REPORT INFORMATION
  Report Type: Spontaneous
  Country: JP (occurrence: JP)
  Receive Date: 20160715
  Receipt Date: 20160715
  Transmission Date: 20161109
  Serious: Yes (Hospitalization, Other)
  Sender: FDA-Public Use
  Company Number: JP-INDIVIOR LIMITED-INDV-091800-2016

PATIENT
  Age: 46 Year
  Sex: Female
  Weight: 38 kg

DRUGS (6)
  1. LEPETAN INJECTION [Suspect]
     Active Substance: BUPRENORPHINE HYDROCHLORIDE
     Indication: ENDOMETRIOSIS
     Dosage: 0.3-0.6 MG (ALMOST EVERY DAY)
     Route: 030
     Dates: start: 20130507, end: 20130527
  2. LEPETAN INJECTION [Suspect]
     Active Substance: BUPRENORPHINE HYDROCHLORIDE
     Dosage: 0.3-0.6 MG (ALMOST EVERY DAY)
     Route: 030
     Dates: start: 20130618, end: 20130625
  3. LEPETAN INJECTION [Suspect]
     Active Substance: BUPRENORPHINE HYDROCHLORIDE
     Indication: PAIN
     Dosage: 1.8 MG (ALMOST EVERY DAY)
     Route: 030
     Dates: start: 20120925, end: 20130118
  4. LEPETAN INJECTION [Suspect]
     Active Substance: BUPRENORPHINE HYDROCHLORIDE
     Dosage: UNK
     Route: 030
     Dates: start: 20140502
  5. PENTAZOCINE [Concomitant]
     Active Substance: PENTAZOCINE
     Indication: DYSMENORRHOEA
     Dosage: 60MG, DAILY
     Route: 030
     Dates: start: 20070126, end: 20110924
  6. QUAZEPAM. [Concomitant]
     Active Substance: QUAZEPAM
     Indication: PRODUCT USED FOR UNKNOWN INDICATION
     Dosage: 1 TAB
     Route: 065
     Dates: start: 20120925

REACTIONS (2)
  - Suicide attempt [Unknown]
  - Drug dependence [Not Recovered/Not Resolved]

NARRATIVE: CASE EVENT DATE: 20120925
